FAERS Safety Report 14251476 (Version 1)
Quarter: 2017Q4

REPORT INFORMATION
  Report Type: Spontaneous
  Country: FR (occurrence: FR)
  Receive Date: 20171205
  Receipt Date: 20171205
  Transmission Date: 20180321
  Serious: No
  Sender: FDA-Public Use
  Company Number: FR-PROMETHEUS LABORATORIES-2017PL000062

PATIENT
  Age: 68 Year
  Sex: Male

DRUGS (7)
  1. INTERFERON ALFA NOS [Suspect]
     Active Substance: INTERFERON ALFA-2A OR INTERFERON ALFA-2B
     Indication: RENAL CELL CARCINOMA
     Dosage: 6 DF, DAILY
     Route: 058
     Dates: start: 19960730, end: 19960804
  2. 5-FU                               /00098801/ [Suspect]
     Active Substance: FLUOROURACIL
     Indication: RENAL CELL CARCINOMA
     Dosage: 1 G, DAILY
     Route: 042
     Dates: start: 19960730, end: 19960804
  3. PARACETAMOL [Concomitant]
     Active Substance: ACETAMINOPHEN
  4. PROLEUKIN [Suspect]
     Active Substance: ALDESLEUKIN
     Dosage: UNK UNKNOWN, UNK
     Route: 065
     Dates: start: 19960813, end: 19960818
  5. SINTROM [Suspect]
     Active Substance: ACENOCOUMAROL
     Indication: PRODUCT USED FOR UNKNOWN INDICATION
     Dosage: 3 MG, DAILY
     Route: 065
     Dates: start: 19960722, end: 19960809
  6. CEFTRIAXONE. [Suspect]
     Active Substance: CEFTRIAXONE
     Indication: RENAL CELL CARCINOMA
     Dosage: 1 OT, DAILY
     Route: 042
     Dates: start: 19960730, end: 19960804
  7. PROLEUKIN [Suspect]
     Active Substance: ALDESLEUKIN
     Indication: RENAL CELL CARCINOMA
     Dosage: 18 OT, DAILY
     Dates: start: 19960730, end: 19960804

REACTIONS (3)
  - Haemoptysis [Recovered/Resolved]
  - Ecchymosis [Recovered/Resolved]
  - Rectal haemorrhage [Recovered/Resolved]

NARRATIVE: CASE EVENT DATE: 19960809
